FAERS Safety Report 9600475 (Version 1)
Quarter: 2013Q4

REPORT INFORMATION
  Report Type: Spontaneous
  Country: US (occurrence: US)
  Receive Date: 20131004
  Receipt Date: 20131004
  Transmission Date: 20140711
  Serious: No
  Sender: FDA-Public Use
  Company Number: US-AMGEN-USASP2013035428

PATIENT
  Age: 28 Year
  Sex: Female
  Weight: 63.04 kg

DRUGS (4)
  1. ENBREL [Suspect]
     Indication: PRODUCT USED FOR UNKNOWN INDICATION
     Dosage: 50 MG, QWK
     Route: 058
     Dates: start: 2010, end: 2010
  2. ASTEPRO [Concomitant]
     Dosage: UNK
  3. CLARITIN                           /00413701/ [Concomitant]
     Dosage: UNK
  4. NASONEX [Concomitant]
     Dosage: UNK

REACTIONS (1)
  - Injection site urticaria [Recovered/Resolved]
